FAERS Safety Report 7358746-1 (Version None)
Quarter: 2011Q1

REPORT INFORMATION
  Report Type: 
  Country: None (occurrence: None)
  Receive Date: 20110317
  Receipt Date: 20101119
  Transmission Date: 20110831
  Serious: Yes (Hospitalization)
  Sender: FDA-Public Use
  Company Number: A0897061A

PATIENT
  Age: 46 Year
  Sex: Male

DRUGS (2)
  1. AVANDIA [Suspect]
     Dosage: 8MG PER DAY
     Route: 048
     Dates: start: 20031123, end: 20100626
  2. AVANDAMET [Suspect]
     Indication: DIABETES MELLITUS
     Route: 048

REACTIONS (6)
  - HYPERTENSION [None]
  - HEART RATE IRREGULAR [None]
  - CARDIOVASCULAR DISORDER [None]
  - CHEST PAIN [None]
  - MYOCARDIAL ISCHAEMIA [None]
  - DYSLIPIDAEMIA [None]
